FAERS Safety Report 11213634 (Version 1)
Quarter: 2015Q2

REPORT INFORMATION
  Report Type: Spontaneous
  Country: IT (occurrence: IT)
  Receive Date: 20150623
  Receipt Date: 20150623
  Transmission Date: 20150821
  Serious: Yes (Hospitalization)
  Sender: FDA-Public Use
  Company Number: IT-MYLANLABS-2015M1020129

PATIENT

DRUGS (1)
  1. VINORELBINE [Suspect]
     Active Substance: VINORELBINE\VINORELBINE TARTRATE
     Indication: RHABDOMYOSARCOMA
     Dosage: ADMINISTERED 58.3MG INSTEAD OF 11.7MG
     Route: 042

REACTIONS (8)
  - Gastrointestinal hypomotility [Recovered/Resolved]
  - Nausea [Recovered/Resolved]
  - Accidental overdose [Recovered/Resolved]
  - Neutropenia [Recovered/Resolved]
  - Myalgia [Recovered/Resolved]
  - Mucosal inflammation [Recovered/Resolved]
  - Medication error [Unknown]
  - Neuropathy peripheral [Recovered/Resolved]
